FAERS Safety Report 8924697 (Version 3)
Quarter: 2013Q1

REPORT INFORMATION
  Report Type: Spontaneous
  Country: AU (occurrence: AU)
  Receive Date: 20121126
  Receipt Date: 20130116
  Transmission Date: 20140127
  Serious: Yes (Life-Threatening, Hospitalization, Disabling, Other)
  Sender: FDA-Public Use
  Company Number: AU-009507513-1211AUS008705

PATIENT
  Age: 87 Year
  Sex: Female

DRUGS (11)
  1. FOSAMAX PLUS [Suspect]
     Indication: OSTEOPOROSIS
     Dosage: UNK
     Route: 048
     Dates: start: 2002, end: 2012
  2. EZETIMIBE (+) SIMVASTATIN [Concomitant]
     Indication: HYPERCHOLESTEROLAEMIA
  3. AMIODARONE [Concomitant]
     Indication: ATRIAL FIBRILLATION
  4. WARFARIN [Concomitant]
     Indication: ATRIAL FIBRILLATION
  5. MICARDIS [Concomitant]
     Indication: LEFT VENTRICULAR FAILURE
  6. LASIX (FUROSEMIDE) [Concomitant]
     Indication: BLOOD 25-HYDROXYCHOLECALCIFEROL
  7. SERETIDE [Concomitant]
     Indication: ASTHMA
  8. VENTOLIN (ALBUTEROL) [Concomitant]
     Indication: ASTHMA
  9. ZOVIRAX [Concomitant]
     Indication: OPHTHALMIC HERPES SIMPLEX
     Route: 047
  10. TRANSIDERM-NITRO [Concomitant]
  11. CALCIUM (UNSPECIFIED) (+) VITAMIN D (UNSPECIFIED) [Concomitant]
     Indication: OSTEOPOROSIS

REACTIONS (18)
  - Femoral neck fracture [Not Recovered/Not Resolved]
  - Fall [Not Recovered/Not Resolved]
  - Atrial fibrillation [Unknown]
  - Oesophageal disorder [Unknown]
  - Food intolerance [Unknown]
  - Femur fracture [Unknown]
  - Urinary tract infection [Unknown]
  - Vaginismus [Unknown]
  - Abdominal discomfort [Unknown]
  - Dyspepsia [Unknown]
  - Cardiovascular disorder [Unknown]
  - Blood alkaline phosphatase increased [Unknown]
  - Thoracic vertebral fracture [Unknown]
  - Thoracic vertebral fracture [Unknown]
  - Thoracic vertebral fracture [Unknown]
  - Thoracic vertebral fracture [Unknown]
  - Bone density decreased [Unknown]
  - Blood calcium decreased [Unknown]
